FAERS Safety Report 10229686 (Version 1)
Quarter: 2014Q2

REPORT INFORMATION
  Report Type: Spontaneous
  Country: US (occurrence: US)
  Receive Date: 20140611
  Receipt Date: 20140611
  Transmission Date: 20141212
  Serious: No
  Sender: FDA-Public Use
  Company Number: US-B.I. PHARMACEUTICALS,INC./RIDGEFIELD-2014-BI-24243BP

PATIENT
  Sex: Female

DRUGS (5)
  1. PRADAXA [Suspect]
     Indication: PRODUCT USED FOR UNKNOWN INDICATION
     Route: 065
  2. LIPITOR [Concomitant]
     Route: 065
  3. LANOXIN [Concomitant]
     Route: 065
  4. CARDIZEM [Concomitant]
     Route: 065
  5. INSULIN [Concomitant]
     Route: 065

REACTIONS (1)
  - Groin pain [Unknown]
